FAERS Safety Report 20957337 (Version 8)
Quarter: 2022Q4

REPORT INFORMATION
  Report Type: Report from Study
  Country: AR (occurrence: AR)
  Receive Date: 20220614
  Receipt Date: 20221025
  Transmission Date: 20230113
  Serious: Yes (Hospitalization)
  Sender: FDA-Public Use
  Company Number: AR-PFIZER INC-202200793209

PATIENT
  Age: 19 Year
  Sex: Female
  Weight: 83 kg

DRUGS (3)
  1. ABROCITINIB [Suspect]
     Active Substance: ABROCITINIB
     Indication: Dermatitis atopic
     Dosage: 100 MG, 1X/DAY
     Route: 048
     Dates: start: 20200403, end: 20220601
  2. YASMIN [Concomitant]
     Active Substance: DROSPIRENONE\ETHINYL ESTRADIOL
     Indication: Contraception
     Dosage: [DROSPIRENONE 3 MG]/ETHINYLESTRADIOL 0.03 MG]/1 PILL, DAILY
     Route: 048
     Dates: start: 2018
  3. CLINDAMYCIN [Concomitant]
     Active Substance: CLINDAMYCIN
     Indication: Subcutaneous abscess
     Dosage: 300 MG, 3X/DAY (Q8HR)
     Route: 048
     Dates: start: 20220510, end: 20220601

REACTIONS (1)
  - Hidradenitis [Recovering/Resolving]

NARRATIVE: CASE EVENT DATE: 20220601
